FAERS Safety Report 9169411 (Version 1)
Quarter: 2013Q1

REPORT INFORMATION
  Report Type: Spontaneous
  Country: US (occurrence: US)
  Receive Date: 20130318
  Receipt Date: 20130318
  Transmission Date: 20140127
  Serious: Yes (Other)
  Sender: FDA-Public Use
  Company Number: US-ELI_LILLY_AND_COMPANY-US201303003253

PATIENT
  Sex: Female

DRUGS (9)
  1. FORTEO [Suspect]
     Indication: OSTEOPOROSIS
     Dosage: UNK
     Dates: start: 2010
  2. LISINOPRIL [Concomitant]
     Dosage: 20 MG, QD
  3. METHOTREXATE [Concomitant]
     Dosage: 2.5 MG, 3/W
  4. PREDNISONE [Concomitant]
     Dosage: 1 MG, BID
  5. HYDROXYZINE HCL [Concomitant]
     Dosage: 10 MG, EACH EVENING
  6. ALPRAZOLAM [Concomitant]
     Dosage: 0.25 MG, EACH EVENING
  7. LORATADINE [Concomitant]
     Dosage: 10 MG, QD
  8. TYLENOL PM [Concomitant]
     Dosage: UNK, EACH EVENING
  9. VITAMINS [Concomitant]
     Dosage: UNK

REACTIONS (1)
  - Hepatic cancer [Unknown]
